FAERS Safety Report 7178268-0 (Version None)
Quarter: 2010Q4

REPORT INFORMATION
  Report Type: 
  Country: None (occurrence: None)
  Receive Date: 20101220
  Receipt Date: 20101217
  Transmission Date: 20110411
  Serious: Yes (Other)
  Sender: FDA-Public Use
  Company Number: DE-PFIZER INC-2010139967

PATIENT
  Age: 81 Year
  Sex: Male

DRUGS (22)
  1. ZOLOFT [Suspect]
     Dosage: 100 MG, DAILY
     Route: 048
     Dates: start: 20100331, end: 20100602
  2. ZOLOFT [Suspect]
     Dosage: 200 MG, DAILY
     Route: 048
     Dates: start: 20100603, end: 20100615
  3. ZOLOFT [Suspect]
     Dosage: 100 MG, DAILY
     Route: 048
     Dates: start: 20100616, end: 20100619
  4. ZOLOFT [Suspect]
     Dosage: 50 MG, DAILY
     Route: 048
     Dates: start: 20100620, end: 20100622
  5. VALDOXAN [Concomitant]
     Dosage: 25 MG, DAILY
     Route: 048
     Dates: start: 20100324
  6. PANTOZOL [Concomitant]
     Dosage: 40 MG, DAILY
     Route: 048
     Dates: start: 20100407
  7. RISPERDAL [Concomitant]
     Dosage: 2 MG, DAILY
     Route: 048
     Dates: start: 20020101, end: 20100324
  8. RISPERDAL [Concomitant]
     Dosage: 2 MG, DAILY
     Route: 048
     Dates: start: 20100416, end: 20100511
  9. RISPERDAL [Concomitant]
     Dosage: 3 MG, DAILY
     Route: 048
     Dates: start: 20100512, end: 20100525
  10. RISPERDAL [Concomitant]
     Dosage: 2 MG, DAILY
     Route: 048
     Dates: start: 20100526, end: 20100615
  11. RISPERDAL [Concomitant]
     Dosage: 1 MG, DAILY
     Route: 048
     Dates: start: 20100616, end: 20100617
  12. ENALAPRIL [Concomitant]
     Dosage: 5 MG, DAILY
     Route: 048
     Dates: start: 20060101
  13. DOXAZOSIN [Concomitant]
     Dosage: 2 MG, DAILY
     Route: 048
     Dates: start: 20060101
  14. FINASTERIDE [Concomitant]
     Dosage: 5 MG, DAILY
     Route: 048
     Dates: start: 20080101
  15. LYRICA [Concomitant]
     Dosage: 75 TO 225 MG PER DAY
     Route: 048
     Dates: start: 20100329, end: 20100408
  16. LYRICA [Concomitant]
     Dosage: 300 MG, DAILY
     Route: 048
     Dates: start: 20100409, end: 20100413
  17. LYRICA [Concomitant]
     Dosage: 400 MG, DAILY
     Route: 048
     Dates: start: 20100414, end: 20100420
  18. LYRICA [Concomitant]
     Dosage: 300 MG, DAILY
     Route: 048
     Dates: start: 20100421, end: 20100601
  19. LYRICA [Concomitant]
     Dosage: 150 MG, DAILY
     Route: 048
     Dates: start: 20100602, end: 20100609
  20. TAVOR [Concomitant]
     Dosage: 1 MG, DAILY
     Route: 048
     Dates: start: 20100331, end: 20100415
  21. TAVOR [Concomitant]
     Dosage: 2 MG, DAILY
     Route: 048
     Dates: start: 20100416, end: 20100420
  22. TAVOR [Concomitant]
     Dosage: 1 MG, DAILY
     Route: 048
     Dates: start: 20100421, end: 20100503

REACTIONS (5)
  - ASCITES [None]
  - COLITIS [None]
  - DIARRHOEA [None]
  - HAEMATOCHEZIA [None]
  - HEPATIC CYST [None]
